FAERS Safety Report 8071661-3 (Version None)
Quarter: 2012Q1

REPORT INFORMATION
  Report Type: 
  Country: None (occurrence: None)
  Receive Date: 20120125
  Receipt Date: 20120120
  Transmission Date: 20120608
  Serious: Yes (Hospitalization)
  Sender: FDA-Public Use
  Company Number: IT-PFIZER INC-2012017537

PATIENT
  Age: 34 Year
  Sex: Male

DRUGS (2)
  1. XANAX [Suspect]
     Indication: INTENTIONAL OVERDOSE
     Dosage: 5 MG TOTAL
     Route: 048
     Dates: start: 20111224, end: 20111224
  2. LEXOTAN [Suspect]
     Indication: INTENTIONAL OVERDOSE
     Dosage: 40 ML TOTAL
     Route: 048
     Dates: start: 20111224, end: 20111224

REACTIONS (3)
  - INTENTIONAL OVERDOSE [None]
  - SOPOR [None]
  - MIOSIS [None]
